FAERS Safety Report 4419625-2 (Version None)
Quarter: 2004Q3

REPORT INFORMATION
  Report Type: 
  Country: None (occurrence: None)
  Receive Date: 20040809
  Receipt Date: 20040225
  Transmission Date: 20050211
  Serious: No
  Sender: FDA-Public Use
  Company Number: 2004-00286

PATIENT
  Age: 59 Year
  Sex: Female
  Weight: 66.4 kg

DRUGS (10)
  1. PAXIL [Suspect]
     Indication: DRUG USE FOR UNKNOWN INDICATION
     Dosage: 12.5MG UNKNOWN
     Route: 048
  2. OXYBUTYNIN CHLORIDE [Suspect]
     Indication: INCONTINENCE
     Dosage: 3PAT SINGLE DOSE
     Route: 062
     Dates: start: 20031208, end: 20031211
  3. ALTACE [Suspect]
     Indication: DRUG USE FOR UNKNOWN INDICATION
     Dosage: 5MG UNKNOWN
     Route: 065
  4. ESTRACE [Suspect]
     Indication: DRUG USE FOR UNKNOWN INDICATION
     Dosage: 1MG UNKNOWN
     Route: 065
  5. PROVERA [Suspect]
     Indication: DRUG USE FOR UNKNOWN INDICATION
     Dosage: 2.5MG UNKNOWN
     Route: 065
  6. LIPITOR [Suspect]
     Indication: DRUG USE FOR UNKNOWN INDICATION
     Dosage: 10MG UNKNOWN
     Route: 065
  7. CALCIUM PHOSPHATE [Concomitant]
  8. CALCIUM SODIUM LACTATE [Concomitant]
  9. VITAMIN E [Concomitant]
  10. CALCIUM + VITAMIN D [Concomitant]

REACTIONS (2)
  - DRUG INTERACTION [None]
  - DRY MOUTH [None]
